FAERS Safety Report 5168575-5 (Version None)
Quarter: 2006Q4

REPORT INFORMATION
  Report Type: 
  Country: None (occurrence: None)
  Receive Date: 20061208
  Receipt Date: 20061128
  Transmission Date: 20070319
  Serious: Yes (Hospitalization)
  Sender: FDA-Public Use
  Company Number: IT-ABBOTT-06P-083-0351824-00

PATIENT
  Sex: Female

DRUGS (4)
  1. HUMIRA [Suspect]
     Indication: RHEUMATOID ARTHRITIS
     Route: 058
     Dates: start: 20050921, end: 20060111
  2. HUMIRA [Suspect]
     Route: 058
     Dates: start: 20050610, end: 20050826
  3. HUMIRA [Suspect]
     Route: 058
     Dates: start: 20060529
  4. LEFLUNOMIDE [Concomitant]
     Indication: RHEUMATOID ARTHRITIS
     Dates: start: 20041119

REACTIONS (2)
  - FALL [None]
  - FEMUR FRACTURE [None]
